FAERS Safety Report 4656283-6 (Version None)
Quarter: 2005Q2

REPORT INFORMATION
  Report Type: 
  Country: None (occurrence: None)
  Receive Date: 20050509
  Receipt Date: 20050330
  Transmission Date: 20051028
  Serious: No
  Sender: FDA-Public Use
  Company Number: US-GLAXOSMITHKLINE-A0551932A

PATIENT
  Age: 56 Year
  Sex: Female

DRUGS (3)
  1. AVANDAMET [Suspect]
     Dosage: 1TAB PER DAY
     Route: 048
     Dates: start: 20050315
  2. AMARYL [Concomitant]
  3. TYLENOL W/ CODEINE [Concomitant]

REACTIONS (3)
  - FATIGUE [None]
  - NAUSEA [None]
  - VAGINAL MYCOSIS [None]
